FAERS Safety Report 14210801 (Version 1)
Quarter: 2017Q4

REPORT INFORMATION
  Report Type: Spontaneous
  Country: CN (occurrence: CN)
  Receive Date: 20171121
  Receipt Date: 20171121
  Transmission Date: 20180321
  Serious: Yes (Hospitalization, Other)
  Sender: FDA-Public Use
  Company Number: CN-JNJFOC-20171119899

PATIENT
  Age: 54 Year
  Sex: Male
  Weight: 42 kg

DRUGS (7)
  1. XARELTO [Suspect]
     Active Substance: RIVAROXABAN
     Indication: PRODUCT USED FOR UNKNOWN INDICATION
     Route: 048
  2. CLOPIDOGREL [Concomitant]
     Active Substance: CLOPIDOGREL BISULFATE
     Indication: CORONARY ARTERY DISEASE
     Route: 065
     Dates: start: 201701, end: 20170508
  3. BAYASPIRIN [Suspect]
     Active Substance: ASPIRIN
     Indication: CORONARY ARTERY DISEASE
     Route: 048
     Dates: start: 201701, end: 20170502
  4. HEPARIN-NATRIUM [Concomitant]
     Indication: CORONARY ARTERY DISEASE
     Route: 065
     Dates: start: 20170427, end: 20170504
  5. BAYASPIRIN [Suspect]
     Active Substance: ASPIRIN
     Indication: CORONARY ARTERY BYPASS
     Route: 048
     Dates: start: 201701, end: 20170502
  6. BAYASPIRIN [Suspect]
     Active Substance: ASPIRIN
     Indication: POSTOPERATIVE CARE
     Route: 048
     Dates: start: 201701, end: 20170502
  7. BAYASPIRIN [Suspect]
     Active Substance: ASPIRIN
     Indication: ACUTE MYOCARDIAL INFARCTION
     Route: 048
     Dates: start: 201701, end: 20170502

REACTIONS (28)
  - Pericardial effusion [Unknown]
  - Decreased appetite [Unknown]
  - Haemoglobin increased [Unknown]
  - Blood uric acid increased [Unknown]
  - Dyspnoea [Unknown]
  - Peripheral venous disease [Unknown]
  - Wheezing [Unknown]
  - Hepatic function abnormal [Unknown]
  - Depressed mood [Unknown]
  - Blood urea increased [Unknown]
  - Prothrombin time prolonged [Unknown]
  - Transaminases increased [Unknown]
  - Liver injury [Unknown]
  - Aortic valve incompetence [Unknown]
  - Blood bilirubin increased [Unknown]
  - International normalised ratio increased [Unknown]
  - Haematocrit increased [Unknown]
  - Left ventricular failure [Unknown]
  - Fibrin D dimer increased [Unknown]
  - Red blood cell count increased [Unknown]
  - Aspartate aminotransferase increased [Unknown]
  - Left ventricular hypertrophy [Unknown]
  - Deep vein thrombosis [Unknown]
  - Ischaemic cardiomyopathy [Unknown]
  - Blood creatinine increased [Unknown]
  - Pleural effusion [Unknown]
  - Alanine aminotransferase increased [Unknown]
  - Bilirubin conjugated increased [Unknown]

NARRATIVE: CASE EVENT DATE: 2017
